FAERS Safety Report 10195758 (Version 1)
Quarter: 2014Q2

REPORT INFORMATION
  Report Type: Spontaneous
  Country: US (occurrence: None)
  Receive Date: 20140522
  Receipt Date: 20140522
  Transmission Date: 20141212
  Serious: Yes (Hospitalization)
  Sender: FDA-Public Use
  Company Number: 2014P1004261

PATIENT
  Age: 15 Year
  Sex: Female

DRUGS (1)
  1. ISONIAZID [Suspect]
     Indication: LATENT TUBERCULOSIS

REACTIONS (6)
  - Hepatitis acute [None]
  - Acute hepatic failure [None]
  - Hepatotoxicity [None]
  - Coagulopathy [None]
  - Autoimmune hepatitis [None]
  - Drug-induced liver injury [None]
